FAERS Safety Report 19546279 (Version 3)
Quarter: 2021Q3

REPORT INFORMATION
  Report Type: Spontaneous
  Country: GB (occurrence: GB)
  Receive Date: 20210714
  Receipt Date: 20210722
  Transmission Date: 20211014
  Serious: Yes (Hospitalization, Disabling, Other)
  Sender: FDA-Public Use
  Company Number: GB-ACCORD-005162

PATIENT
  Age: 70 Year
  Sex: Male

DRUGS (14)
  1. METRONIDAZOLE. [Interacting]
     Active Substance: METRONIDAZOLE
     Indication: CELLULITIS
     Dosage: 400 MG, 3X PER DAY, TABLET
     Route: 048
  2. WARFARIN [Interacting]
     Active Substance: WARFARIN
     Indication: PULMONARY EMBOLISM
  3. MEROPENEM. [Interacting]
     Active Substance: MEROPENEM
     Indication: CELLULITIS
     Dosage: 2 G, 2X PER DAY
     Route: 042
  4. TEICOPLANIN [Interacting]
     Active Substance: TEICOPLANIN
     Indication: CELLULITIS
     Dosage: 400 MG, 1X PER DAY
  5. ACETYLSALICYLIC ACID [Interacting]
     Active Substance: ASPIRIN
     Indication: CHEST PAIN
     Dosage: 75 MG, QD
  6. CIPROFLOXACIN/CIPROFLOXACIN HYDROCHLORIDE/CIPROFLOXACIN LACTATE [Suspect]
     Active Substance: CIPROFLOXACIN
     Indication: CELLULITIS
     Dosage: 750 MG, 2X PER DAY
     Route: 048
  7. ERYTHROMYCIN. [Interacting]
     Active Substance: ERYTHROMYCIN
     Indication: CELLULITIS
     Dosage: 250 MG, 4X PER DAY
     Route: 048
  8. PHYTOMENADIONE [Concomitant]
     Active Substance: PHYTONADIONE
  9. ERYTHROMYCIN. [Interacting]
     Active Substance: ERYTHROMYCIN
     Indication: CELLULITIS
     Dosage: 250 MG, 4X PER DAY
     Route: 048
  10. CLOPIDOGREL [Suspect]
     Active Substance: CLOPIDOGREL BISULFATE
     Indication: PRODUCT USED FOR UNKNOWN INDICATION
     Dosage: 75 MG, DAILY
     Route: 048
  11. CIPROFLOXACIN/CIPROFLOXACIN HYDROCHLORIDE/CIPROFLOXACIN LACTATE [Suspect]
     Active Substance: CIPROFLOXACIN
     Indication: ANTIBIOTIC THERAPY
  12. TEICOPLANIN [Concomitant]
     Active Substance: TEICOPLANIN
     Indication: CELLULITIS
     Route: 030
  13. MEROPENEM. [Interacting]
     Active Substance: MEROPENEM
     Dosage: 2 G, 2X PER DAY
     Route: 042
  14. CLOPIDOGREL [Suspect]
     Active Substance: CLOPIDOGREL BISULFATE
     Indication: CHEST PAIN
     Dosage: 300 MG, DAILY
     Route: 048

REACTIONS (11)
  - Intraocular pressure increased [Not Recovered/Not Resolved]
  - Coagulation time prolonged [Recovered/Resolved with Sequelae]
  - Visual acuity reduced [Unknown]
  - Headache [Unknown]
  - Nausea [Unknown]
  - Eye pain [Recovered/Resolved with Sequelae]
  - Decreased appetite [Unknown]
  - Pyrexia [Unknown]
  - Drug interaction [Unknown]
  - Hyphaema [Recovered/Resolved with Sequelae]
  - International normalised ratio increased [Recovered/Resolved]
